FAERS Safety Report 6162585-7 (Version None)
Quarter: 2009Q2

REPORT INFORMATION
  Report Type: 
  Country: None (occurrence: None)
  Receive Date: 20090421
  Receipt Date: 20080630
  Transmission Date: 20091009
  Serious: No
  Sender: FDA-Public Use
  Company Number: US-ASTRAZENECA-2006UW08633

PATIENT
  Age: 67 Year
  Sex: Female
  Weight: 68 kg

DRUGS (4)
  1. ARIMIDEX [Suspect]
     Indication: BREAST CANCER
     Route: 048
     Dates: start: 20051101
  2. CALCIUM SUPPLEMENT [Concomitant]
  3. M.V.I. [Concomitant]
  4. ASCORBIC ACID [Concomitant]

REACTIONS (9)
  - BONE DENSITY DECREASED [None]
  - DIPLOPIA [None]
  - HYPERCHOLESTEROLAEMIA [None]
  - INSOMNIA [None]
  - LOW DENSITY LIPOPROTEIN INCREASED [None]
  - NIGHT SWEATS [None]
  - RASH [None]
  - RESORPTION BONE INCREASED [None]
  - VISUAL IMPAIRMENT [None]
